FAERS Safety Report 10304716 (Version 2)
Quarter: 2014Q3

REPORT INFORMATION
  Report Type: Spontaneous
  Country: CH (occurrence: None)
  Receive Date: 20140710
  Receipt Date: 20140723
  Transmission Date: 20150326
  Serious: Yes (Other)
  Sender: FDA-Public Use
  Company Number: 20140383

PATIENT
  Age: 39 Year
  Sex: Female

DRUGS (1)
  1. FERINJECT [Suspect]
     Active Substance: FERRIC CARBOXYMALTOSE
     Indication: IRON DEFICIENCY ANAEMIA
     Dosage: 1000 MG ( 1 IN 1 DAY)
     Route: 041
     Dates: start: 20140324, end: 20140324

REACTIONS (7)
  - Abdominal pain [None]
  - Pyrexia [None]
  - Paraesthesia [None]
  - Chills [None]
  - Headache [None]
  - Nasopharyngitis [None]
  - Formication [None]

NARRATIVE: CASE EVENT DATE: 20140324
